FAERS Safety Report 14193485 (Version 1)
Quarter: 2017Q4

REPORT INFORMATION
  Report Type: Spontaneous
  Country: US (occurrence: US)
  Receive Date: 20171115
  Receipt Date: 20171115
  Transmission Date: 20180321
  Serious: No
  Sender: FDA-Public Use
  Company Number: US-BAUSCH-BL-2017-003378

PATIENT
  Sex: Male
  Weight: 95.79 kg

DRUGS (3)
  1. LUVOX [Concomitant]
     Active Substance: FLUVOXAMINE MALEATE
     Indication: PRODUCT USED FOR UNKNOWN INDICATION
     Dosage: AT BED TIME
     Route: 048
  2. XENAZINE [Suspect]
     Active Substance: TETRABENAZINE
     Indication: TIC
     Route: 048
     Dates: start: 201201
  3. KLONOPIN [Concomitant]
     Active Substance: CLONAZEPAM
     Indication: PRODUCT USED FOR UNKNOWN INDICATION
     Dosage: 0.5MG, 2.5 TABLETS AT BED TIME
     Route: 048

REACTIONS (7)
  - Prescribed overdose [Unknown]
  - Somnolence [Unknown]
  - Abnormal behaviour [Unknown]
  - Anxiety [Unknown]
  - Anger [Unknown]
  - Fatigue [Unknown]
  - Off label use [Unknown]
